FAERS Safety Report 16025535 (Version 1)
Quarter: 2019Q1

REPORT INFORMATION
  Report Type: Spontaneous
  Country: US (occurrence: US)
  Receive Date: 20190302
  Receipt Date: 20190302
  Transmission Date: 20190418
  Serious: Yes (Hospitalization, Other)
  Sender: FDA-Public Use
  Company Number: US-ABBVIE-19K-163-2678340-00

PATIENT
  Sex: Male
  Weight: 81.72 kg

DRUGS (6)
  1. HUMIRA [Suspect]
     Active Substance: ADALIMUMAB
     Indication: PSORIATIC ARTHROPATHY
  2. HUMIRA [Suspect]
     Active Substance: ADALIMUMAB
     Indication: PSORIATIC ARTHROPATHY
  3. TRIAMCINOLONE ACETONIDE 0.025% [Concomitant]
     Indication: PRODUCT USED FOR UNKNOWN INDICATION
  4. HUMIRA [Suspect]
     Active Substance: ADALIMUMAB
     Indication: PSORIATIC ARTHROPATHY
  5. HUMIRA [Suspect]
     Active Substance: ADALIMUMAB
     Indication: PSORIATIC ARTHROPATHY
     Route: 058
     Dates: start: 2017, end: 2018
  6. HUMIRA [Suspect]
     Active Substance: ADALIMUMAB
     Indication: PSORIATIC ARTHROPATHY

REACTIONS (24)
  - Skin exfoliation [Recovered/Resolved]
  - Synovitis [Unknown]
  - Psoriatic arthropathy [Unknown]
  - Neck pain [Unknown]
  - Neck deformity [Unknown]
  - Arthralgia [Unknown]
  - Seizure [Unknown]
  - Alcoholism [Unknown]
  - Condition aggravated [Not Recovered/Not Resolved]
  - Rotator cuff syndrome [Unknown]
  - Musculoskeletal stiffness [Unknown]
  - Vomiting [Unknown]
  - Drug ineffective [Unknown]
  - Skin discolouration [Unknown]
  - Insomnia [Unknown]
  - Pain in extremity [Unknown]
  - Joint range of motion decreased [Unknown]
  - Pruritus [Recovered/Resolved]
  - Peripheral swelling [Unknown]
  - Stress [Unknown]
  - Psoriasis [Unknown]
  - Alcohol withdrawal syndrome [Unknown]
  - Tenosynovitis [Unknown]
  - Arthritis [Recovering/Resolving]

NARRATIVE: CASE EVENT DATE: 2019
